FAERS Safety Report 10436119 (Version 1)
Quarter: 2014Q3

REPORT INFORMATION
  Report Type: Spontaneous
  Country: US (occurrence: None)
  Receive Date: 20140905
  Receipt Date: 20140905
  Transmission Date: 20150326
  Serious: Yes (Hospitalization)
  Sender: FDA-Public Use
  Company Number: None

PATIENT
  Age: 28 Year
  Sex: Female
  Weight: 58.97 kg

DRUGS (7)
  1. MYCOPHENOLATE MOFETIL. [Concomitant]
     Active Substance: MYCOPHENOLATE MOFETIL
  2. TACROLIMUS. [Concomitant]
     Active Substance: TACROLIMUS
  3. CEFTAROLINE [Suspect]
     Active Substance: CEFTAROLINE
     Indication: DIALYSIS RELATED COMPLICATION
     Route: 042
     Dates: start: 20140812, end: 20140827
  4. ONDANSETRON [Concomitant]
     Active Substance: ONDANSETRON
  5. CEFTAROLINE [Suspect]
     Active Substance: CEFTAROLINE
     Indication: DEVICE RELATED INFECTION
     Route: 042
     Dates: start: 20140812, end: 20140827
  6. ANTIBIOTICA [Concomitant]
  7. CEFTAROLINE [Suspect]
     Active Substance: CEFTAROLINE
     Indication: STAPHYLOCOCCAL BACTERAEMIA
     Route: 042
     Dates: start: 20140812, end: 20140827

REACTIONS (5)
  - Pyrexia [None]
  - Vomiting [None]
  - Thrombocytopenia [None]
  - Nausea [None]
  - Headache [None]

NARRATIVE: CASE EVENT DATE: 20140827
